FAERS Safety Report 18641925 (Version 1)
Quarter: 2020Q4

REPORT INFORMATION
  Report Type: Spontaneous
  Country: US (occurrence: US)
  Receive Date: 20201219
  Receipt Date: 20201219
  Transmission Date: 20210114
  Serious: Yes (Hospitalization)
  Sender: FDA-Public Use
  Company Number: None

PATIENT
  Age: 76 Year
  Sex: Male
  Weight: 123 kg

DRUGS (1)
  1. BAMLANIVIMAB 700 MG IV INFUSION [Suspect]
     Active Substance: BAMLANIVIMAB
     Indication: COVID-19
     Dosage: ?          OTHER FREQUENCY:ONCE;?
     Route: 042
     Dates: start: 20201218, end: 20201218

REACTIONS (12)
  - Blood glucose increased [None]
  - Blood pressure decreased [None]
  - COVID-19 [None]
  - Chills [None]
  - Tachycardia [None]
  - Fall [None]
  - Nausea [None]
  - Pyrexia [None]
  - Confusional state [None]
  - Delirium [None]
  - Chest pain [None]
  - Tachypnoea [None]

NARRATIVE: CASE EVENT DATE: 20201218
